FAERS Safety Report 4533734-9 (Version None)
Quarter: 2004Q4

REPORT INFORMATION
  Report Type: 
  Country: None (occurrence: None)
  Receive Date: 20041221
  Receipt Date: 20041217
  Transmission Date: 20050328
  Serious: Yes (Hospitalization)
  Sender: FDA-Public Use
  Company Number: FR-GLAXOSMITHKLINE-B0362103A

PATIENT
  Age: 78 Year
  Sex: Female

DRUGS (5)
  1. ZOVIRAX [Suspect]
     Dosage: 600MG THREE TIMES PER DAY
     Route: 042
     Dates: start: 20040604, end: 20040609
  2. FORTUM [Suspect]
     Dosage: 1G THREE TIMES PER DAY
     Route: 042
     Dates: start: 20040515, end: 20040609
  3. NICARDIPINE HCL [Concomitant]
     Dosage: 20MG THREE TIMES PER DAY
     Route: 048
     Dates: start: 20040507
  4. CORDARONE [Concomitant]
     Dosage: 200MG PER DAY
     Route: 048
     Dates: start: 20040507
  5. MUCOMYST [Concomitant]
     Dosage: 200MG THREE TIMES PER DAY
     Route: 048
     Dates: start: 20040507

REACTIONS (3)
  - AGRANULOCYTOSIS [None]
  - LEUKOPENIA [None]
  - NEUTROPENIA [None]
